FAERS Safety Report 23377504 (Version 2)
Quarter: 2024Q1

REPORT INFORMATION
  Report Type: Spontaneous
  Country: CN (occurrence: CN)
  Receive Date: 20240108
  Receipt Date: 20240117
  Transmission Date: 20240410
  Serious: Yes (Hospitalization, Other)
  Sender: FDA-Public Use
  Company Number: CN-SANDOZ-SDZ2023CN073929

PATIENT
  Age: 64 Year
  Sex: Female

DRUGS (2)
  1. ZOLEDRONIC ACID [Suspect]
     Active Substance: ZOLEDRONIC ACID
     Indication: Metastases to bone
     Dosage: 160 MG
     Route: 065
  2. ICOTINIB [Concomitant]
     Active Substance: ICOTINIB
     Indication: Product used for unknown indication
     Route: 065

REACTIONS (3)
  - Renal tubular acidosis [Unknown]
  - Fanconi syndrome [Unknown]
  - Renal tubular injury [Recovering/Resolving]
